FAERS Safety Report 14220861 (Version 2)
Quarter: 2018Q2

REPORT INFORMATION
  Report Type: Report from Study
  Country: US (occurrence: US)
  Receive Date: 20171124
  Receipt Date: 20180524
  Transmission Date: 20180711
  Serious: Yes (Other)
  Sender: FDA-Public Use
  Company Number: US-ASTRAZENECA-2017SF17629

PATIENT
  Sex: Female

DRUGS (1)
  1. TAGRISSO [Suspect]
     Active Substance: OSIMERTINIB
     Indication: NON-SMALL CELL LUNG CANCER
     Route: 048
     Dates: start: 20170607

REACTIONS (9)
  - Decreased appetite [Unknown]
  - Tension [Unknown]
  - Nausea [Unknown]
  - Chest pain [Unknown]
  - Malignant neoplasm progression [Unknown]
  - Gait disturbance [Unknown]
  - Asthenia [Unknown]
  - Malignant neoplasm progression [Unknown]
  - Sinus headache [Unknown]

NARRATIVE: CASE EVENT DATE: 20171009
